FAERS Safety Report 8298461-3 (Version None)
Quarter: 2012Q2

REPORT INFORMATION
  Report Type: 
  Country: None (occurrence: None)
  Receive Date: 20120419
  Receipt Date: 20120413
  Transmission Date: 20120825
  Serious: Yes (Other)
  Sender: FDA-Public Use
  Company Number: US-BAYER-2012-036603

PATIENT
  Age: 39 Year
  Sex: Male
  Weight: 82 kg

DRUGS (2)
  1. ALKA-SELTZER PLUS COLD SPARKLING ORIGINAL [Suspect]
     Indication: RHINORRHOEA
     Dosage: 2 DF, ONCE
     Route: 048
     Dates: start: 20120411, end: 20120411
  2. ALKA-SELTZER PLUS COLD SPARKLING ORIGINAL [Suspect]
     Indication: OROPHARYNGEAL PAIN

REACTIONS (4)
  - HAEMATEMESIS [None]
  - ABDOMINAL DISCOMFORT [None]
  - ABDOMINAL PAIN UPPER [None]
  - ABDOMINAL DISTENSION [None]
